FAERS Safety Report 10568580 (Version 1)
Quarter: 2014Q4

REPORT INFORMATION
  Report Type: Report from Study
  Country: US (occurrence: US)
  Receive Date: 20141106
  Receipt Date: 20141106
  Transmission Date: 20150529
  Serious: Yes (Congenital Anomaly)
  Sender: FDA-Public Use
  Company Number: US-GLAXOSMITHKLINE-US2014GSK016070

PATIENT

DRUGS (3)
  1. LAMIVUDINE AND ZIDOVUDINE [Suspect]
     Active Substance: LAMIVUDINE\ZIDOVUDINE
     Indication: HIV INFECTION
     Dosage: UNK, U
     Route: 064
  2. ZIDOVUDINE. [Suspect]
     Active Substance: ZIDOVUDINE
     Indication: HIV INFECTION
     Dosage: 784 MG/DAY, SINGLE
     Route: 064
     Dates: start: 20140419, end: 20140419
  3. VIRAMUNE [Suspect]
     Active Substance: NEVIRAPINE
     Indication: HIV INFECTION
     Dosage: UNK, U
     Route: 064

REACTIONS (5)
  - Premature baby [Unknown]
  - Twin pregnancy [Unknown]
  - Foetal exposure during pregnancy [Unknown]
  - Cyst [Unknown]
  - Maternal drugs affecting foetus [None]

NARRATIVE: CASE EVENT DATE: 20140404
